FAERS Safety Report 20494076 (Version 1)
Quarter: 2022Q1

REPORT INFORMATION
  Report Type: Spontaneous
  Country: IL (occurrence: IL)
  Receive Date: 20220221
  Receipt Date: 20220221
  Transmission Date: 20220423
  Serious: Yes (Other)
  Sender: FDA-Public Use
  Company Number: IL-ALKEM LABORATORIES LIMITED-IL-ALKEM-2022-01191

PATIENT

DRUGS (1)
  1. PREGABALIN [Suspect]
     Active Substance: PREGABALIN
     Indication: Product used for unknown indication
     Dosage: UNK
     Route: 065

REACTIONS (2)
  - Toxic epidermal necrolysis [Unknown]
  - Stevens-Johnson syndrome [Unknown]
